FAERS Safety Report 4685988-6 (Version None)
Quarter: 2005Q2

REPORT INFORMATION
  Report Type: 
  Country: None (occurrence: None)
  Receive Date: 20050607
  Receipt Date: 20050607
  Transmission Date: 20051028
  Serious: Yes (Death, Hospitalization)
  Sender: FDA-Public Use
  Company Number: None

PATIENT
  Age: 65 Year
  Sex: Female
  Weight: 120 kg

DRUGS (24)
  1. GINGKO BILOBA [Suspect]
     Indication: MEMORY IMPAIRMENT
     Dosage: 30 MG TWICE DAILY ORAL
     Route: 048
     Dates: start: 20040301, end: 20050308
  2. WARFARIN [Suspect]
     Indication: ATRIAL FIBRILLATION
     Dosage: 4 MG DAILY ORAL
     Route: 048
     Dates: start: 20040301, end: 20050308
  3. THYROID TAB [Concomitant]
  4. FLECAINIDE ACETATE [Concomitant]
  5. VERELAN PM [Concomitant]
  6. TOPROL-XL [Concomitant]
  7. BENICAR [Concomitant]
  8. NEURONTIN [Concomitant]
  9. FEMHRT [Concomitant]
  10. VIOXX [Concomitant]
  11. ACETAMINOPHEN [Concomitant]
  12. M.V.I. [Concomitant]
  13. ASCORBIC ACID [Concomitant]
  14. VITAMIN E [Concomitant]
  15. NIACIN [Concomitant]
  16. VITAMIN B6 [Concomitant]
  17. VITAMIN B-12 [Concomitant]
  18. SELENIUM TRACE METAL ADDITIVE [Concomitant]
  19. LECITHIN [Concomitant]
  20. CALCIUM GLUCONATE [Concomitant]
  21. BETA-CAROTENE [Concomitant]
  22. IRON [Concomitant]
  23. QUININE [Concomitant]
  24. GENSENG [Concomitant]

REACTIONS (4)
  - CEREBRAL HAEMATOMA [None]
  - HAEMORRHAGE [None]
  - HEMIPARESIS [None]
  - HYPERTENSION [None]
